FAERS Safety Report 5120687-8 (Version None)
Quarter: 2006Q4

REPORT INFORMATION
  Report Type: 
  Country: None (occurrence: None)
  Receive Date: 20061004
  Receipt Date: 20060927
  Transmission Date: 20070319
  Serious: Yes (Other)
  Sender: FDA-Public Use
  Company Number: ES-BOEHRINGER INGELHEIM PHARMACEUTICALS, INC.-2006-ES-00339ES

PATIENT
  Age: 34 Year
  Sex: Male
  Weight: 98 kg

DRUGS (4)
  1. VIRAMUNE [Suspect]
     Indication: HIV INFECTION
     Route: 048
     Dates: start: 20060717
  2. TRUVADA [Suspect]
     Indication: HIV INFECTION
     Dosage: 200 MG TENOFOVIR + 245 MG EMTRICITABINE
     Route: 048
     Dates: start: 20060717
  3. ATENOLOL [Concomitant]
     Indication: ESSENTIAL HYPERTENSION
     Route: 048
  4. TERTENSIF [Concomitant]
     Indication: ESSENTIAL HYPERTENSION
     Route: 048

REACTIONS (2)
  - DYSPNOEA [None]
  - HYPERTENSION [None]
